FAERS Safety Report 19442246 (Version 1)
Quarter: 2021Q2

REPORT INFORMATION
  Report Type: Spontaneous
  Country: US (occurrence: US)
  Receive Date: 20210618
  Receipt Date: 20210618
  Transmission Date: 20210717
  Serious: No
  Sender: FDA-Public Use
  Company Number: None

PATIENT
  Age: 61 Year
  Sex: Female
  Weight: 77.11 kg

DRUGS (18)
  1. ALPRAZOLAM. [Concomitant]
     Active Substance: ALPRAZOLAM
  2. DOXEPIN [Concomitant]
     Active Substance: DOXEPIN
  3. SALINE MIST SPRAY [Concomitant]
  4. FOLIC ACID. [Concomitant]
     Active Substance: FOLIC ACID
  5. ADVAIR HFA [Concomitant]
     Active Substance: FLUTICASONE PROPIONATE\SALMETEROL XINAFOATE
  6. LORATADINE. [Concomitant]
     Active Substance: LORATADINE
  7. FLUTICASONE. [Concomitant]
     Active Substance: FLUTICASONE
  8. PROAIR HFA [Concomitant]
     Active Substance: ALBUTEROL SULFATE
  9. ALBUTEROL. [Concomitant]
     Active Substance: ALBUTEROL
  10. ESCITALOPRAM [Concomitant]
     Active Substance: ESCITALOPRAM OXALATE
  11. SPIRIVA [Concomitant]
     Active Substance: TIOTROPIUM BROMIDE MONOHYDRATE
  12. TOPIRAMATE. [Concomitant]
     Active Substance: TOPIRAMATE
  13. VEMLIDY [Concomitant]
     Active Substance: TENOFOVIR ALAFENAMIDE FUMARATE
  14. PROCHLORPERAZINE. [Concomitant]
     Active Substance: PROCHLORPERAZINE
  15. ONDANSETRON [Concomitant]
     Active Substance: ONDANSETRON
  16. IBRANCE [Suspect]
     Active Substance: PALBOCICLIB
     Indication: BREAST CANCER
     Dosage: ?          OTHER FREQUENCY:DAILY X 21 DAYS;?
     Route: 048
     Dates: start: 20201008
  17. ARIPIPRAZOLE. [Concomitant]
     Active Substance: ARIPIPRAZOLE
  18. ANASTROZOLE. [Concomitant]
     Active Substance: ANASTROZOLE

REACTIONS (5)
  - Nausea [None]
  - Dizziness [None]
  - Fatigue [None]
  - Vomiting [None]
  - Dyspepsia [None]

NARRATIVE: CASE EVENT DATE: 20210618
